FAERS Safety Report 26162605 (Version 1)
Quarter: 2025Q4

REPORT INFORMATION
  Report Type: Spontaneous
  Country: CA (occurrence: CA)
  Receive Date: 20251216
  Receipt Date: 20251216
  Transmission Date: 20260118
  Serious: Yes (Other)
  Sender: TEVA
  Company Number: CA-TEVA-VS-3402477

PATIENT
  Age: 86 Year
  Sex: Male
  Weight: 66 kg

DRUGS (1)
  1. AMLODIPINE BESYLATE [Suspect]
     Active Substance: AMLODIPINE BESYLATE
     Indication: Product used for unknown indication
     Route: 048

REACTIONS (3)
  - Tooth injury [Not Recovered/Not Resolved]
  - Mastication disorder [Not Recovered/Not Resolved]
  - Gingival pain [Not Recovered/Not Resolved]
